FAERS Safety Report 17264967 (Version 2)
Quarter: 2020Q1

REPORT INFORMATION
  Report Type: Report from Study
  Country: US (occurrence: US)
  Receive Date: 20200113
  Receipt Date: 20200203
  Transmission Date: 20200409
  Serious: Yes (Hospitalization, Other)
  Sender: FDA-Public Use
  Company Number: US-ACTELION-A-NJ2020-200369

PATIENT
  Age: 59 Year
  Sex: Female

DRUGS (20)
  1. LASIX [Concomitant]
     Active Substance: FUROSEMIDE
  2. SILDENAFIL. [Concomitant]
     Active Substance: SILDENAFIL
  3. FUROSEMIDE. [Concomitant]
     Active Substance: FUROSEMIDE
  4. SIMVASTATIN. [Concomitant]
     Active Substance: SIMVASTATIN
  5. ESTRACE [Concomitant]
     Active Substance: ESTRADIOL
  6. METOPROLOL. [Concomitant]
     Active Substance: METOPROLOL
  7. AMIODARONE [Concomitant]
     Active Substance: AMIODARONE
  8. ZOFRAN [Concomitant]
     Active Substance: ONDANSETRON HYDROCHLORIDE
  9. SYNTHROID [Concomitant]
     Active Substance: LEVOTHYROXINE SODIUM
  10. LEVOTHYROXINE. [Concomitant]
     Active Substance: LEVOTHYROXINE
  11. PERCOCET [Concomitant]
     Active Substance: ACETAMINOPHEN\OXYCODONE HYDROCHLORIDE
  12. COUMADIN [Concomitant]
     Active Substance: WARFARIN SODIUM
  13. MAGNESIUM OXIDE. [Concomitant]
     Active Substance: MAGNESIUM OXIDE
  14. OPSUMIT [Suspect]
     Active Substance: MACITENTAN
     Indication: PULMONARY ARTERIAL HYPERTENSION
     Dosage: 10 MG, QD
     Route: 048
     Dates: start: 201910, end: 202001
  15. WARFARIN [Concomitant]
     Active Substance: WARFARIN
  16. LISINOPRIL. [Concomitant]
     Active Substance: LISINOPRIL
  17. ASPRIN [Concomitant]
     Active Substance: ASPIRIN
  18. CALCIUM [Concomitant]
     Active Substance: CALCIUM
  19. VITAMIN D [Concomitant]
     Active Substance: VITAMIN D NOS
  20. MULTI VITAMIN [Concomitant]
     Active Substance: VITAMINS

REACTIONS (9)
  - Fluid overload [Unknown]
  - Cardiac failure [Unknown]
  - Catheterisation cardiac [Unknown]
  - Coronary artery bypass [Unknown]
  - Hypotension [Unknown]
  - Cardiac failure acute [Unknown]
  - Nausea [Unknown]
  - Aortic valve incompetence [Unknown]
  - Aortic valve replacement [Unknown]

NARRATIVE: CASE EVENT DATE: 201912
